FAERS Safety Report 10175431 (Version 2)
Quarter: 2014Q2

REPORT INFORMATION
  Report Type: Report from Study
  Country: CA (occurrence: CA)
  Receive Date: 20140515
  Receipt Date: 20140515
  Transmission Date: 20141212
  Serious: Yes (Hospitalization)
  Sender: FDA-Public Use
  Company Number: CA-US-EMD SERONO, INC.-7275122

PATIENT
  Age: 23 Year
  Sex: Female

DRUGS (2)
  1. REBIF [Suspect]
     Indication: RELAPSING-REMITTING MULTIPLE SCLEROSIS
     Route: 058
     Dates: start: 20140206, end: 20140220
  2. REBIF [Suspect]
     Route: 058
     Dates: start: 20140320, end: 201404

REACTIONS (10)
  - Multiple sclerosis relapse [Unknown]
  - Musculoskeletal pain [Unknown]
  - Mood swings [Unknown]
  - Arthralgia [Unknown]
  - Depression [Recovered/Resolved]
  - Pain [Recovered/Resolved]
  - Pain in extremity [Recovered/Resolved]
  - Speech disorder [Unknown]
  - Malaise [Unknown]
  - Device issue [Unknown]
